FAERS Safety Report 4758865-X (Version None)
Quarter: 2005Q3

REPORT INFORMATION
  Report Type: 
  Country: None (occurrence: None)
  Receive Date: 20050901
  Receipt Date: 20050819
  Transmission Date: 20060218
  Serious: Yes (Life-Threatening, Other)
  Sender: FDA-Public Use
  Company Number: US-MERCK-0508USA03488

PATIENT
  Age: 51 Year
  Sex: Female
  Weight: 64 kg

DRUGS (5)
  1. VIOXX [Suspect]
     Indication: ARTHRALGIA
     Route: 048
     Dates: start: 20000401
  2. BENICAR [Concomitant]
     Route: 065
     Dates: start: 20020301
  3. BENICAR [Concomitant]
     Route: 065
     Dates: start: 20020301
  4. IMITREX [Concomitant]
     Indication: MIGRAINE
     Route: 065
     Dates: start: 19950101
  5. PREMARIN [Concomitant]
     Indication: HORMONE REPLACEMENT THERAPY
     Route: 065
     Dates: start: 19810101

REACTIONS (1)
  - CEREBROVASCULAR ACCIDENT [None]
